FAERS Safety Report 9162335 (Version 1)
Quarter: 2013Q1

REPORT INFORMATION
  Report Type: Spontaneous
  Country: US (occurrence: US)
  Receive Date: 20130314
  Receipt Date: 20130314
  Transmission Date: 20140127
  Serious: Yes (Death)
  Sender: FDA-Public Use
  Company Number: US-PFIZER INC-2013084297

PATIENT
  Age: 77 Year
  Sex: Male

DRUGS (1)
  1. SUTENT [Suspect]
     Indication: SOFT TISSUE NEOPLASM
     Dosage: 12.5 MG, UNK
     Dates: start: 20120120

REACTIONS (3)
  - Renal failure [Fatal]
  - Disease progression [Fatal]
  - Soft tissue neoplasm [Fatal]
